FAERS Safety Report 7576618-4 (Version None)
Quarter: 2011Q2

REPORT INFORMATION
  Report Type: 
  Country: None (occurrence: None)
  Receive Date: 20110628
  Receipt Date: 20110620
  Transmission Date: 20111010
  Serious: Yes (Death)
  Sender: FDA-Public Use
  Company Number: JP-ELI_LILLY_AND_COMPANY-JP201106005904

PATIENT
  Age: 35 Year
  Sex: Female
  Weight: 30 kg

DRUGS (1)
  1. HUMULIN 70/30 [Suspect]
     Dosage: UNK
     Route: 058

REACTIONS (3)
  - COMPLETED SUICIDE [None]
  - OVERDOSE [None]
  - HYPOGLYCAEMIA [None]
